FAERS Safety Report 6301423-6 (Version None)
Quarter: 2009Q3

REPORT INFORMATION
  Report Type: 
  Country: None (occurrence: None)
  Receive Date: 20090807
  Receipt Date: 20090307
  Transmission Date: 20100115
  Serious: Yes (Other)
  Sender: FDA-Public Use
  Company Number: CA-PFIZER INC-2009248036

PATIENT
  Age: 13 Year

DRUGS (1)
  1. SUNITINIB MALATE [Suspect]
     Indication: GLIOMA
     Dosage: 15 MG/M2, QD DAY 1-28
     Route: 048
     Dates: start: 20080721

REACTIONS (1)
  - NEPHROLITHIASIS [None]
